FAERS Safety Report 12866584 (Version 1)
Quarter: 2016Q4

REPORT INFORMATION
  Report Type: Spontaneous
  Country: US (occurrence: US)
  Receive Date: 20161020
  Receipt Date: 20161020
  Transmission Date: 20170207
  Serious: No
  Sender: FDA-Public Use
  Company Number: US-BAUSCH-BL-2016-002107

PATIENT
  Age: 68 Year
  Sex: Female
  Weight: 77.18 kg

DRUGS (4)
  1. WELLBUTRIN XL(GENERIC) [Suspect]
     Active Substance: BUPROPION HYDROCHLORIDE
     Indication: NERVOUSNESS
     Route: 048
     Dates: start: 201512, end: 201512
  2. LIBRAX [Concomitant]
     Active Substance: CHLORDIAZEPOXIDE HYDROCHLORIDE\CLIDINIUM BROMIDE
     Indication: ABDOMINAL PAIN UPPER
     Route: 048
  3. NEXIUM [Concomitant]
     Active Substance: ESOMEPRAZOLE MAGNESIUM
     Indication: ABDOMINAL PAIN UPPER
     Route: 048
  4. WELLBUTRIN XL [Suspect]
     Active Substance: BUPROPION HYDROCHLORIDE
     Indication: NERVOUSNESS
     Route: 048
     Dates: end: 201512

REACTIONS (5)
  - Off label use [Recovered/Resolved]
  - Agitation [Recovered/Resolved]
  - Feeling hot [Recovered/Resolved]
  - Malaise [Recovered/Resolved]
  - Nervousness [Recovered/Resolved]

NARRATIVE: CASE EVENT DATE: 201512
